FAERS Safety Report 18517155 (Version 77)
Quarter: 2023Q4

REPORT INFORMATION
  Report Type: Report from Study
  Country: MX (occurrence: MX)
  Receive Date: 20201118
  Receipt Date: 20231218
  Transmission Date: 20240109
  Serious: Yes (Hospitalization, Other)
  Sender: FDA-Public Use
  Company Number: MX-SHIRE-MX202001151

PATIENT
  Age: 6 Year
  Sex: Male
  Weight: 22 kg

DRUGS (8)
  1. IDURSULFASE [Suspect]
     Active Substance: IDURSULFASE
     Indication: Mucopolysaccharidosis II
     Dosage: 12 MILLIGRAM
     Route: 042
     Dates: start: 20150101
  2. IDURSULFASE [Suspect]
     Active Substance: IDURSULFASE
     Dosage: 2 DOSAGE FORM, 1/WEEK
     Route: 042
     Dates: start: 20191115, end: 20200812
  3. IDURSULFASE [Suspect]
     Active Substance: IDURSULFASE
     Dosage: UNK, 1/WEEK
     Route: 042
  4. IDURSULFASE [Suspect]
     Active Substance: IDURSULFASE
     Dosage: 12 MILLIGRAM
     Route: 042
  5. IDURSULFASE [Suspect]
     Active Substance: IDURSULFASE
     Dosage: UNK
     Route: 042
  6. RISPERIDONE [Concomitant]
     Active Substance: RISPERIDONE
     Indication: Mucopolysaccharidosis II
     Dosage: 1.5 MILLIGRAM, QD
     Route: 065
     Dates: start: 2019
  7. RISPERIDONE [Concomitant]
     Active Substance: RISPERIDONE
     Dosage: 2.5 MILLILITER, Q12H
     Route: 050
     Dates: start: 201912
  8. CAPTOPRIL [Concomitant]
     Active Substance: CAPTOPRIL
     Indication: Mucopolysaccharidosis II
     Dosage: 25 MILLIGRAM, QD
     Route: 065
     Dates: start: 202003

REACTIONS (21)
  - Meningitis [Recovering/Resolving]
  - Pyrexia [Recovering/Resolving]
  - COVID-19 [Not Recovered/Not Resolved]
  - Tooth disorder [Recovering/Resolving]
  - Nasopharyngitis [Recovering/Resolving]
  - Rhinorrhoea [Recovering/Resolving]
  - Malaise [Recovering/Resolving]
  - Vomiting [Recovering/Resolving]
  - Gingival swelling [Not Recovered/Not Resolved]
  - Discomfort [Not Recovered/Not Resolved]
  - Inflammation [Not Recovered/Not Resolved]
  - Illness [Recovering/Resolving]
  - Influenza [Recovering/Resolving]
  - Anxiety [Recovering/Resolving]
  - Gait inability [Recovering/Resolving]
  - Dyspnoea [Not Recovered/Not Resolved]
  - Diarrhoea [Not Recovered/Not Resolved]
  - Urticaria [Recovering/Resolving]
  - Product availability issue [Recovering/Resolving]
  - Inappropriate schedule of product administration [Recovering/Resolving]
  - Product dose omission issue [Recovering/Resolving]

NARRATIVE: CASE EVENT DATE: 20191230
